FAERS Safety Report 6446435-7 (Version None)
Quarter: 2009Q4

REPORT INFORMATION
  Report Type: 
  Country: None (occurrence: None)
  Receive Date: 20091119
  Receipt Date: 20091109
  Transmission Date: 20100525
  Serious: Yes (Hospitalization)
  Sender: FDA-Public Use
  Company Number: PHHO2009JP01756

PATIENT
  Sex: Male
  Weight: 73 kg

DRUGS (7)
  1. RAD 666 RAD+TAB+CMAS [Suspect]
     Indication: RENAL CANCER METASTATIC
     Dosage: CODE NOT BROKEN
     Route: 048
     Dates: start: 20071105
  2. ALLOZYM [Concomitant]
     Indication: GOUT
     Dosage: UNK
     Dates: start: 20050412, end: 20090204
  3. LIDOMEX [Concomitant]
     Indication: PHOTOSENSITIVITY REACTION
     Dosage: UNK
     Dates: start: 20080617
  4. CINAL [Concomitant]
     Indication: PHOTOSENSITIVITY REACTION
     Dosage: UNK
     Dates: start: 20080519
  5. LOCOID [Concomitant]
     Indication: PHOTOSENSITIVITY REACTION
     Dosage: UNK
     Dates: start: 20080519
  6. KENALOG [Concomitant]
     Indication: STOMATITIS
     Dosage: UNK
     Dates: start: 20080228
  7. ALOSITOL [Concomitant]
     Indication: GOUT
     Dosage: 300 MG, QD
     Dates: start: 20090204

REACTIONS (8)
  - BLOOD CREATINE PHOSPHOKINASE INCREASED [None]
  - HYPERCHOLESTEROLAEMIA [None]
  - HYPERLIPIDAEMIA [None]
  - HYPOTHYROIDISM [None]
  - RENAL IMPAIRMENT [None]
  - SWELLING FACE [None]
  - TOOTH EXTRACTION [None]
  - TOOTHACHE [None]
